FAERS Safety Report 15582996 (Version 1)
Quarter: 2018Q4

REPORT INFORMATION
  Report Type: Spontaneous
  Country: ES (occurrence: ES)
  Receive Date: 20181103
  Receipt Date: 20181103
  Transmission Date: 20190205
  Serious: Yes (Hospitalization)
  Sender: FDA-Public Use
  Company Number: ES-ACCORD-090917

PATIENT
  Age: 67 Year
  Sex: Male

DRUGS (7)
  1. TAMSULOSIN/TAMSULOSIN HYDROCHLORIDE [Concomitant]
     Indication: BENIGN PROSTATIC HYPERPLASIA
     Dosage: 1 CP
     Route: 048
     Dates: start: 20160527
  2. AZITHROMYCIN ANHYDROUS. [Suspect]
     Active Substance: AZITHROMYCIN ANHYDROUS
     Indication: RESPIRATORY TRACT INFECTION
     Dosage: 1 CP
     Route: 048
     Dates: start: 20170102, end: 20170106
  3. HYDROCHLOROTHIAZIDE/VALSARTAN [Concomitant]
     Dosage: 1-0-0, STRENGTH:32 / 12.5
     Route: 048
     Dates: start: 20141209
  4. HIDROFEROL [Concomitant]
     Active Substance: CALCIFEDIOL
     Indication: OSTEOPOROSIS
     Dosage: 1 AMP, STRENGTH: 266
     Route: 048
     Dates: start: 20160527
  5. LEVOFLOXACIN/LEVOFLOXACIN MESYLATE [Suspect]
     Active Substance: LEVOFLOXACIN
     Indication: RESPIRATORY TRACT INFECTION
     Route: 048
     Dates: start: 20170124, end: 20170202
  6. ALLOPURINOL. [Suspect]
     Active Substance: ALLOPURINOL
     Indication: HYPERURICAEMIA
     Dosage: STRENGTH: 300 MG
     Route: 048
     Dates: start: 20160527, end: 20170215
  7. AMOXICILLIN/CLAVULANIC ACID [Suspect]
     Active Substance: AMOXICILLIN\CLAVULANIC ACID
     Indication: RESPIRATORY TRACT INFECTION
     Dosage: 1.1.1, STRENGTH: 875 MG/125 MG
     Route: 048
     Dates: start: 20170117, end: 20170123

REACTIONS (2)
  - Eosinophilia [Recovering/Resolving]
  - Eosinophilic pleural effusion [Recovered/Resolved]

NARRATIVE: CASE EVENT DATE: 20170221
